FAERS Safety Report 6407217-5 (Version None)
Quarter: 2009Q4

REPORT INFORMATION
  Report Type: 
  Country: None (occurrence: None)
  Receive Date: 20091020
  Receipt Date: 20091008
  Transmission Date: 20100525
  Serious: Yes (Hospitalization, Other)
  Sender: FDA-Public Use
  Company Number: FR-CELGENEUS-056-20484-09100981

PATIENT
  Sex: Male

DRUGS (9)
  1. INNOHEP [Suspect]
     Indication: ATRIAL FIBRILLATION
     Route: 058
     Dates: start: 20070205, end: 20070205
  2. LOVENOX [Suspect]
     Indication: ATRIAL FIBRILLATION
     Route: 058
     Dates: start: 20070129, end: 20070204
  3. PREVISCAN [Concomitant]
     Indication: ATRIAL FIBRILLATION
     Route: 065
  4. DIFFU K [Concomitant]
     Indication: DRUG USE FOR UNKNOWN INDICATION
     Route: 065
  5. CARDENSIEL [Concomitant]
     Indication: ATRIAL FIBRILLATION
     Route: 065
  6. CORDARONE [Concomitant]
     Indication: DRUG USE FOR UNKNOWN INDICATION
     Route: 065
  7. ALDACTONE [Concomitant]
     Indication: DRUG USE FOR UNKNOWN INDICATION
     Route: 065
  8. LASILIX [Concomitant]
     Indication: DRUG USE FOR UNKNOWN INDICATION
     Route: 065
  9. BISOPROLOL [Concomitant]
     Indication: ATRIAL FIBRILLATION
     Route: 065

REACTIONS (5)
  - DERMATITIS BULLOUS [None]
  - ECZEMA [None]
  - ERYTHEMA [None]
  - ERYTHEMA INDURATUM [None]
  - HAEMORRHAGE SUBCUTANEOUS [None]
